FAERS Safety Report 22362656 (Version 1)
Quarter: 2023Q2

REPORT INFORMATION
  Report Type: Spontaneous
  Country: SI (occurrence: SI)
  Receive Date: 20230524
  Receipt Date: 20230524
  Transmission Date: 20230722
  Serious: Yes (Death, Other)
  Sender: FDA-Public Use
  Company Number: SI-009507513-2305SVN006908

PATIENT
  Sex: Male

DRUGS (3)
  1. PEMBROLIZUMAB [Suspect]
     Active Substance: PEMBROLIZUMAB
     Dosage: 200 MG IV EVERY 3 WEEKS (ONLY ONE CYCLE ADMINISTERED)
     Route: 042
     Dates: start: 20221122, end: 20221122
  2. CISPLATIN [Suspect]
     Active Substance: CISPLATIN
     Indication: Laryngeal cancer recurrent
     Dosage: 100 MILLIGRAM/SQ. METER, Q3W
     Route: 042
     Dates: start: 20221122, end: 20221122
  3. FLUOROURACIL [Suspect]
     Active Substance: FLUOROURACIL
     Indication: Laryngeal cancer recurrent
     Dosage: 1000 MILLIGRAM/SQ. METER, Q3W
     Route: 042
     Dates: start: 20221122, end: 20221122

REACTIONS (1)
  - Death [Fatal]
